FAERS Safety Report 7875852-3 (Version None)
Quarter: 2011Q4

REPORT INFORMATION
  Report Type: 
  Country: None (occurrence: None)
  Receive Date: 20111031
  Receipt Date: 20111020
  Transmission Date: 20120403
  Serious: Yes (Other)
  Sender: FDA-Public Use
  Company Number: PHHY2011JP93366

PATIENT
  Sex: Male
  Weight: 52 kg

DRUGS (6)
  1. LOCHOLEST [Concomitant]
     Dosage: 1600 MG
     Route: 048
     Dates: start: 20110823
  2. AFINITOR [Suspect]
     Indication: METASTATIC RENAL CELL CARCINOMA
     Dosage: 10 MG
     Route: 048
     Dates: start: 20110812
  3. AXITINIB [Concomitant]
     Indication: METASTATIC RENAL CELL CARCINOMA
     Dosage: 5 MG
     Route: 048
     Dates: start: 20110204, end: 20110722
  4. RABEPRAZOLE SODIUM [Concomitant]
     Indication: METASTATIC RENAL CELL CARCINOMA
     Dosage: 10 MG
     Route: 048
     Dates: start: 20110728
  5. ALLOPURINOL [Concomitant]
     Dosage: 100 MG
     Route: 048
     Dates: start: 20101216
  6. ETODOLAC [Concomitant]
     Indication: METASTATIC RENAL CELL CARCINOMA
     Dosage: 400 MG
     Route: 048
     Dates: start: 20110727

REACTIONS (1)
  - GAMMA-GLUTAMYLTRANSFERASE INCREASED [None]
